FAERS Safety Report 4603909-9 (Version None)
Quarter: 2005Q1

REPORT INFORMATION
  Report Type: 
  Country: None (occurrence: None)
  Receive Date: 20050310
  Receipt Date: 20050228
  Transmission Date: 20050727
  Serious: Yes (Hospitalization)
  Sender: FDA-Public Use
  Company Number: BR-ROCHE-396941

PATIENT
  Age: 9 Year
  Sex: Female

DRUGS (2)
  1. RIVOTRIL [Suspect]
     Indication: AGITATION
     Route: 048
     Dates: start: 20050227, end: 20050227
  2. RIVOTRIL [Suspect]
     Route: 048
     Dates: start: 20041115, end: 20050226

REACTIONS (3)
  - LOSS OF CONSCIOUSNESS [None]
  - SOMNOLENCE [None]
  - SUICIDE ATTEMPT [None]
